FAERS Safety Report 20164173 (Version 1)
Quarter: 2021Q4

REPORT INFORMATION
  Report Type: Report from Study
  Country: US (occurrence: US)
  Receive Date: 20211209
  Receipt Date: 20211209
  Transmission Date: 20220303
  Serious: Yes (Other)
  Sender: FDA-Public Use
  Company Number: US-GLAXOSMITHKLINE-US2021AMR249722

PATIENT
  Sex: Female

DRUGS (2)
  1. NIRAPARIB [Suspect]
     Active Substance: NIRAPARIB
     Indication: Retroperitoneal cancer
     Dosage: 300 MG, QD
     Route: 048
     Dates: start: 20191210
  2. NIRAPARIB [Suspect]
     Active Substance: NIRAPARIB
     Indication: Malignant peritoneal neoplasm

REACTIONS (5)
  - Throat cancer [Unknown]
  - Pharyngeal haemorrhage [Unknown]
  - Gastrointestinal disorder [Not Recovered/Not Resolved]
  - Dysphagia [Unknown]
  - Epistaxis [Unknown]
